FAERS Safety Report 5022192-6 (Version None)
Quarter: 2006Q2

REPORT INFORMATION
  Report Type: 
  Country: None (occurrence: None)
  Receive Date: 20060501
  Receipt Date: 20060224
  Transmission Date: 20061013
  Serious: No
  Sender: FDA-Public Use
  Company Number: 2006PV009263

PATIENT
  Age: 79 Year
  Sex: Female
  Weight: 52.1637 kg

DRUGS (4)
  1. SYMLIN [Suspect]
     Indication: DIABETES MELLITUS INSULIN-DEPENDENT
     Dosage: 15 MCG;TID;SC
     Route: 058
     Dates: start: 20060224
  2. HUMALOG [Concomitant]
  3. LANTUS [Concomitant]
  4. .. [Concomitant]

REACTIONS (1)
  - BLOOD GLUCOSE INCREASED [None]
